FAERS Safety Report 7128885-9 (Version None)
Quarter: 2010Q4

REPORT INFORMATION
  Report Type: 
  Country: None (occurrence: None)
  Receive Date: 20101130
  Receipt Date: 20101117
  Transmission Date: 20110411
  Serious: Yes (Hospitalization)
  Sender: FDA-Public Use
  Company Number: A0832743A

PATIENT
  Age: 55 Year
  Sex: Male
  Weight: 77.3 kg

DRUGS (12)
  1. AVANDIA [Suspect]
     Dosage: 4MG TWICE PER DAY
     Route: 048
     Dates: start: 20011209, end: 20080101
  2. AVANDARYL [Suspect]
     Indication: DIABETES MELLITUS
     Route: 048
  3. AVANDAMET [Suspect]
     Indication: DIABETES MELLITUS
     Route: 048
     Dates: start: 20050101, end: 20060101
  4. GLUCOPHAGE [Concomitant]
  5. AMARYL [Concomitant]
  6. LIPITOR [Concomitant]
  7. VASOTEC [Concomitant]
  8. LOPID [Concomitant]
  9. ZOCOR [Concomitant]
  10. INSULIN [Concomitant]
  11. CYMBALTA [Concomitant]
  12. PRAVACHOL [Concomitant]

REACTIONS (4)
  - CARDIAC DISORDER [None]
  - CEREBRAL INFARCTION [None]
  - ISCHAEMIC STROKE [None]
  - TRANSIENT ISCHAEMIC ATTACK [None]
